FAERS Safety Report 7529418-5 (Version None)
Quarter: 2011Q2

REPORT INFORMATION
  Report Type: 
  Country: None (occurrence: None)
  Receive Date: 20110531
  Receipt Date: 20110516
  Transmission Date: 20111010
  Serious: Yes (Hospitalization)
  Sender: FDA-Public Use
  Company Number: AUR-APL-2011-01603

PATIENT
  Age: 62 Year
  Sex: Male

DRUGS (3)
  1. LISINOPRIL [Concomitant]
  2. GABAPENTIN [Suspect]
     Indication: HYPERTENSION
     Dosage: 300MG - TID - ORAL
     Route: 048
     Dates: end: 20110419
  3. TERAZOSIN HCL [Concomitant]

REACTIONS (5)
  - BLOOD PRESSURE FLUCTUATION [None]
  - PRODUCT ODOUR ABNORMAL [None]
  - DIZZINESS [None]
  - PRODUCT TASTE ABNORMAL [None]
  - PRODUCT QUALITY ISSUE [None]
